FAERS Safety Report 17644255 (Version 1)
Quarter: 2020Q2

REPORT INFORMATION
  Report Type: Spontaneous
  Country: US (occurrence: US)
  Receive Date: 20200408
  Receipt Date: 20200408
  Transmission Date: 20200713
  Serious: No
  Sender: FDA-Public Use
  Company Number: US-PFIZER INC-2020139309

PATIENT
  Sex: Female

DRUGS (2)
  1. DILANTIN [Suspect]
     Active Substance: PHENYTOIN
     Dosage: 100 MG, DAILY
  2. DILANTIN [Suspect]
     Active Substance: PHENYTOIN
     Indication: SEIZURE
     Dosage: 300 MG, DAILY (1X100MG IN THE AM AND 2X100MG AT NIGHT)

REACTIONS (3)
  - Off label use [Unknown]
  - Drug ineffective [Unknown]
  - Intentional product use issue [Unknown]
